FAERS Safety Report 11624266 (Version 1)
Quarter: 2015Q4

REPORT INFORMATION
  Report Type: Spontaneous
  Country: GB (occurrence: GB)
  Receive Date: 20151013
  Receipt Date: 20151013
  Transmission Date: 20160304
  Serious: Yes (Life-Threatening, Other)
  Sender: FDA-Public Use
  Company Number: GB-ACCORD-034236

PATIENT
  Age: 67 Year
  Sex: Female
  Weight: 55 kg

DRUGS (1)
  1. ONDANSETRON [Suspect]
     Active Substance: ONDANSETRON
     Indication: VOMITING PROJECTILE
     Route: 051

REACTIONS (6)
  - Serotonin syndrome [Not Recovered/Not Resolved]
  - Off label use [Unknown]
  - Cerebrovascular accident [Not Recovered/Not Resolved]
  - Aphasia [Not Recovered/Not Resolved]
  - Atrial fibrillation [Not Recovered/Not Resolved]
  - Overdose [Unknown]
